FAERS Safety Report 8014930-5 (Version None)
Quarter: 2011Q4

REPORT INFORMATION
  Report Type: 
  Country: None (occurrence: None)
  Receive Date: 20111229
  Receipt Date: 20111228
  Transmission Date: 20120403
  Serious: Yes (Hospitalization)
  Sender: FDA-Public Use
  Company Number: IT-ROCHE-1024659

PATIENT
  Sex: Male

DRUGS (7)
  1. AVASTIN [Suspect]
     Indication: COLON CANCER
     Dates: start: 20110119, end: 20110620
  2. FLUOROURACIL [Concomitant]
     Dosage: FLUOROURACILE BAXTER
     Route: 041
     Dates: start: 20110119, end: 20110620
  3. RANITIDINA [Concomitant]
     Dosage: RANITADINA MYLAN GENERICS
     Route: 048
     Dates: start: 20110119, end: 20110620
  4. DEXAMETHASONE SODIUM PHOSPHATE [Concomitant]
     Route: 041
     Dates: start: 20110119, end: 20110620
  5. LEVOLEUCOVORIN CALCIUM [Concomitant]
     Route: 041
     Dates: start: 20110119, end: 20110620
  6. ELOXATIN [Concomitant]
     Route: 041
     Dates: start: 20110119, end: 20110620
  7. ZOFRAN [Concomitant]
     Route: 041
     Dates: start: 20110119, end: 20110620

REACTIONS (2)
  - ABDOMINAL RIGIDITY [None]
  - ABDOMINAL PAIN [None]
